FAERS Safety Report 9725499 (Version 1)
Quarter: 2013Q4

REPORT INFORMATION
  Report Type: Spontaneous
  Country: US (occurrence: None)
  Receive Date: 20131202
  Receipt Date: 20131202
  Transmission Date: 20140711
  Serious: Yes (Disabling)
  Sender: FDA-Public Use
  Company Number: None

PATIENT
  Age: 58 Year
  Sex: Female
  Weight: 58.97 kg

DRUGS (1)
  1. GEODON [Suspect]
     Indication: MOOD SWINGS
     Dosage: 1 PILL
     Route: 048
     Dates: start: 20130131, end: 20130627

REACTIONS (10)
  - Tremor [None]
  - Muscle twitching [None]
  - Restlessness [None]
  - Anxiety [None]
  - Hallucination, auditory [None]
  - Somnambulism [None]
  - Muscular weakness [None]
  - Hyperhidrosis [None]
  - Muscle atrophy [None]
  - Joint crepitation [None]
